FAERS Safety Report 16177717 (Version 1)
Quarter: 2019Q2

REPORT INFORMATION
  Report Type: Spontaneous
  Country: DE (occurrence: DE)
  Receive Date: 20190410
  Receipt Date: 20190410
  Transmission Date: 20190711
  Serious: Yes (Death, Other)
  Sender: FDA-Public Use
  Company Number: DE-AUROBINDO-AUR-APL-2019-018351

PATIENT

DRUGS (5)
  1. LISINOPRIL. [Suspect]
     Active Substance: LISINOPRIL
     Indication: HYPERTENSION
     Dosage: 15 MILLIGRAM, DAILY
     Route: 048
  2. FUROSEMID [Concomitant]
     Active Substance: FUROSEMIDE
     Indication: PRODUCT USED FOR UNKNOWN INDICATION
     Dosage: 20 MILLIGRAM, DAILY
     Route: 048
  3. UNACID (AMPICILLIN SODIUM\SULBACTAM SODIUM) [Concomitant]
     Active Substance: AMPICILLIN SODIUM\SULBACTAM SODIUM
     Indication: PROPHYLAXIS
     Dosage: 3 GRAM, UNK
     Route: 042
  4. CARBIMAZOL [Concomitant]
     Active Substance: CARBIMAZOLE
     Indication: HYPERTHYROIDISM
     Dosage: 10 MILLIGRAM, DAILY
     Route: 048
  5. AMLODIPIN [Concomitant]
     Active Substance: AMLODIPINE BESYLATE
     Indication: PRODUCT USED FOR UNKNOWN INDICATION
     Dosage: 10 MILLIGRAM, DAILY
     Route: 048

REACTIONS (9)
  - Angioedema [Fatal]
  - Pulmonary sepsis [Fatal]
  - Pneumonia aspiration [Fatal]
  - Endotracheal intubation [Fatal]
  - Swollen tongue [Fatal]
  - Dyspnoea [Fatal]
  - Multiple organ dysfunction syndrome [Fatal]
  - Acute respiratory distress syndrome [Fatal]
  - Tracheostomy [Fatal]

NARRATIVE: CASE EVENT DATE: 20190228
